FAERS Safety Report 4833105-1 (Version None)
Quarter: 2005Q4

REPORT INFORMATION
  Report Type: 
  Country: None (occurrence: None)
  Receive Date: 20051121
  Receipt Date: 20050706
  Transmission Date: 20060501
  Serious: Yes (Hospitalization)
  Sender: FDA-Public Use
  Company Number: US-ROCHE-410173

PATIENT
  Sex: Male

DRUGS (6)
  1. ACCUTANE [Suspect]
     Indication: ACNE CYSTIC
     Dates: start: 19871221, end: 19880615
  2. ACCUTANE [Suspect]
     Dates: start: 19900925
  3. ORAL CONTRACEPTIVE PILL [Concomitant]
     Indication: MENSTRUATION IRREGULAR
     Dates: start: 19920615, end: 19940615
  4. CLOMID [Concomitant]
  5. PERGONAL [Concomitant]
  6. PRENATAL VITAMINS [Concomitant]

REACTIONS (9)
  - ABORTION SPONTANEOUS [None]
  - AMNIOTIC CAVITY DISORDER [None]
  - ANTEPARTUM HAEMORRHAGE [None]
  - DRUG EXPOSURE BEFORE PREGNANCY [None]
  - HAEMATOMA [None]
  - HAEMORRHAGE [None]
  - JAUNDICE [None]
  - JAUNDICE NEONATAL [None]
  - TWIN PREGNANCY [None]
